FAERS Safety Report 14603367 (Version 2)
Quarter: 2018Q2

REPORT INFORMATION
  Report Type: Report from Study
  Country: None (occurrence: CA)
  Receive Date: 20180306
  Receipt Date: 20180402
  Transmission Date: 20180711
  Serious: Yes (Hospitalization, Other)
  Sender: FDA-Public Use
  Company Number: CA-ABBVIE-18K-028-2272302-00

PATIENT
  Sex: Female

DRUGS (4)
  1. HUMIRA [Suspect]
     Active Substance: ADALIMUMAB
     Dosage: ALTERNATE DOSE OF 80MG ONE WEEK FOLLOWED BY 40MG THE NEXT WEEK.
     Route: 058
  2. HUMIRA [Suspect]
     Active Substance: ADALIMUMAB
     Indication: CROHN^S DISEASE
     Route: 058
     Dates: start: 20140821
  3. PROPRANOLOL [Suspect]
     Active Substance: PROPRANOLOL HYDROCHLORIDE
     Indication: PRODUCT USED FOR UNKNOWN INDICATION
     Route: 065
  4. PREDNISONE. [Concomitant]
     Active Substance: PREDNISONE
     Indication: PRODUCT USED FOR UNKNOWN INDICATION

REACTIONS (16)
  - Rectal ulcer [Recovering/Resolving]
  - Gastrointestinal wall thickening [Recovering/Resolving]
  - Dysphonia [Unknown]
  - Influenza [Recovered/Resolved]
  - Insomnia [Unknown]
  - Gingival recession [Unknown]
  - Salmonellosis [Recovered/Resolved]
  - Malaise [Not Recovered/Not Resolved]
  - Diarrhoea [Unknown]
  - Constipation [Recovering/Resolving]
  - Crohn^s disease [Not Recovered/Not Resolved]
  - Pain [Recovering/Resolving]
  - Intestinal ulcer [Unknown]
  - Hyperthyroidism [Not Recovered/Not Resolved]
  - Graft complication [Not Recovered/Not Resolved]
  - Enteritis [Recovering/Resolving]

NARRATIVE: CASE EVENT DATE: 2017
